FAERS Safety Report 15098348 (Version 2)
Quarter: 2018Q3

REPORT INFORMATION
  Report Type: Spontaneous
  Country: JP (occurrence: JP)
  Receive Date: 20180702
  Receipt Date: 20180817
  Transmission Date: 20181010
  Serious: Yes (Hospitalization, Other)
  Sender: FDA-Public Use
  Company Number: JP-BRISTOL-MYERS SQUIBB COMPANY-BMS-2018-061583

PATIENT
  Age: 75 Year
  Sex: Male

DRUGS (1)
  1. OPDIVO [Suspect]
     Active Substance: NIVOLUMAB
     Indication: HEAD AND NECK CANCER
     Dosage: UNK
     Route: 041
     Dates: start: 20170908, end: 20171227

REACTIONS (4)
  - Pleural effusion [Unknown]
  - Malignant neoplasm progression [Unknown]
  - Pneumonia [Unknown]
  - Rash [Unknown]

NARRATIVE: CASE EVENT DATE: 20180205
